FAERS Safety Report 18272182 (Version 1)
Quarter: 2020Q3

REPORT INFORMATION
  Report Type: Spontaneous
  Country: ES (occurrence: ES)
  Receive Date: 20200916
  Receipt Date: 20200916
  Transmission Date: 20201103
  Serious: Yes (Hospitalization)
  Sender: FDA-Public Use
  Company Number: ES-CADILA HEALTHCARE LIMITED-ES-ZYDUS-027874

PATIENT

DRUGS (4)
  1. METFORMIN [Suspect]
     Active Substance: METFORMIN HYDROCHLORIDE
     Indication: HYPERGLYCAEMIA
     Dosage: 875 MILLIGRAM,875 MG PER DAY,(INTERVAL :24 HOURS)
     Route: 048
     Dates: start: 20160602, end: 20160713
  2. PIRFENIDONE. [Suspect]
     Active Substance: PIRFENIDONE
     Indication: PULMONARY FIBROSIS
     Dosage: 267 MILLIGRAM,267 MG 3 TIMES A DAY,(INTERVAL :8 HOURS)
     Route: 048
     Dates: start: 20160526, end: 20160714
  3. PANTOPRAZOLE [Suspect]
     Active Substance: PANTOPRAZOLE
     Indication: PROPHYLAXIS
     Dosage: 20 MILLIGRAM,(INTERVAL :24 HOURS)
     Route: 048
     Dates: start: 20160610, end: 20160708
  4. TRAZODONE [Suspect]
     Active Substance: TRAZODONE HYDROCHLORIDE
     Indication: DEPRESSION
     Dosage: 100 MILLIGRAM,100 MG PER DAY,(INTERVAL :24 HOURS)
     Route: 048
     Dates: start: 20160630, end: 20160713

REACTIONS (3)
  - Renal impairment [Recovered/Resolved]
  - Drug reaction with eosinophilia and systemic symptoms [Recovered/Resolved]
  - Hepatitis [Recovered/Resolved]

NARRATIVE: CASE EVENT DATE: 20160708
